FAERS Safety Report 5989129-4 (Version None)
Quarter: 2008Q4

REPORT INFORMATION
  Report Type: 
  Country: None (occurrence: None)
  Receive Date: 20081210
  Receipt Date: 20081126
  Transmission Date: 20090506
  Serious: Yes (Hospitalization)
  Sender: FDA-Public Use
  Company Number: US-WATSON-2008-07045

PATIENT
  Age: 31 Year
  Sex: Female

DRUGS (2)
  1. DEXAMETHASONE SODIUM PHOSPHATE [Suspect]
     Indication: ANTIINFLAMMATORY THERAPY
     Dosage: 60 MG, SINGLE
     Route: 042
  2. DEXAMETHASONE SODIUM PHOSPHATE [Suspect]
     Dosage: 4 MG, Q6H
     Route: 042

REACTIONS (1)
  - BONE INFARCTION [None]
